FAERS Safety Report 8476490-4 (Version None)
Quarter: 2012Q2

REPORT INFORMATION
  Report Type: 
  Country: None (occurrence: None)
  Receive Date: 20120628
  Receipt Date: 20120626
  Transmission Date: 20120825
  Serious: Yes (Hospitalization)
  Sender: FDA-Public Use
  Company Number: US-BAYER-2011-088639

PATIENT
  Age: 80 Year
  Sex: Male
  Weight: 89.1 kg

DRUGS (12)
  1. SARGRAMOSTIM [Suspect]
     Dosage: 250 ?G, QD
     Route: 058
     Dates: start: 20110627, end: 20110710
  2. MDX-010 [Suspect]
     Indication: MALIGNANT MELANOMA
     Dosage: 10 MG/KG, ONCE
     Route: 042
     Dates: start: 20110808, end: 20110808
  3. MINOXIDIL [Concomitant]
     Dosage: 20 MG, BID
  4. VICODIN [Concomitant]
     Indication: PAIN
     Dosage: UNK UNK, PRN
  5. MDX-010 [Suspect]
     Dosage: 10 MG/KG, ONCE
     Route: 042
     Dates: start: 20110718, end: 20110718
  6. LISINOPRILHYDROCHLOROTHIAZIDE RATIOPHARM [Concomitant]
     Dosage: 20/5, 1 TABLET DAILY
  7. AMLODIPINE [Concomitant]
     Dosage: 5 MG, QD
  8. SARGRAMOSTIM [Suspect]
     Dosage: 250 ?G, QD
     Route: 058
     Dates: start: 20110718, end: 20110731
  9. SARGRAMOSTIM [Suspect]
     Dosage: 250 ?G, QD
     Route: 058
     Dates: start: 20110905
  10. SARGRAMOSTIM [Suspect]
     Indication: MALIGNANT MELANOMA
     Dosage: 250 ?G, QD
     Route: 058
     Dates: start: 20110808, end: 20110821
  11. MDX-010 [Suspect]
     Dosage: 10 MG/KG, ONCE
     Route: 042
     Dates: start: 20110627, end: 20110627
  12. METOPROLOL SUCCINATE [Concomitant]
     Dosage: 100 MG, BID

REACTIONS (5)
  - LUNG INFECTION [None]
  - MUSCULAR WEAKNESS [None]
  - DIARRHOEA [None]
  - DECREASED APPETITE [None]
  - DEHYDRATION [None]
